FAERS Safety Report 8337834-7 (Version None)
Quarter: 2012Q2

REPORT INFORMATION
  Report Type: 
  Country: None (occurrence: None)
  Receive Date: 20120504
  Receipt Date: 20120423
  Transmission Date: 20120825
  Serious: Yes (Other)
  Sender: FDA-Public Use
  Company Number: US-ELI_LILLY_AND_COMPANY-US201202005591

PATIENT
  Sex: Female

DRUGS (11)
  1. FOLIC ACID [Concomitant]
     Dosage: UNK, UNKNOWN
     Route: 065
  2. VITAMIN C [Concomitant]
     Dosage: UNK, UNKNOWN
     Route: 065
  3. FORTEO [Suspect]
     Indication: OSTEOPOROSIS
     Dosage: 20 UG, QD
     Route: 065
     Dates: start: 20101001
  4. FORTEO [Suspect]
     Dosage: 20 UG, QD
     Route: 065
     Dates: end: 20120319
  5. VITAMIN D [Concomitant]
     Dosage: UNK, UNKNOWN
     Route: 065
  6. LIPITOR [Concomitant]
     Dosage: UNK, UNKNOWN
     Route: 065
  7. ASPIRIN [Concomitant]
     Dosage: UNK, UNKNOWN
     Route: 065
  8. PLAVIX [Concomitant]
     Dosage: UNK, UNKNOWN
     Route: 065
  9. METOPROLOL TARTRATE [Concomitant]
     Dosage: UNK, UNKNOWN
     Route: 065
  10. DIGOXIN [Concomitant]
     Dosage: UNK, UNKNOWN
     Route: 065
  11. LISINOPRIL [Concomitant]
     Dosage: UNK, UNKNOWN
     Route: 065

REACTIONS (2)
  - ARTHRALGIA [None]
  - CORONARY ARTERY BYPASS [None]
